FAERS Safety Report 9962867 (Version 2)
Quarter: 2014Q1

REPORT INFORMATION
  Report Type: Report from Study
  Country: US (occurrence: US)
  Receive Date: 20140305
  Receipt Date: 20140305
  Transmission Date: 20141002
  Serious: No
  Sender: FDA-Public Use
  Company Number: US-ABBVIE-13P-163-1062821-00

PATIENT
  Age: 55 Year
  Sex: Female

DRUGS (9)
  1. HUMIRA [Suspect]
     Indication: CROHN^S DISEASE
     Dates: start: 20130204
  2. PAXIL [Concomitant]
     Indication: ANXIETY
     Dosage: 20 MG DAILY
  3. INDERAL [Concomitant]
     Indication: MIGRAINE
     Dosage: 80 MG DAILY
  4. PREDNISONE [Concomitant]
     Indication: CROHN^S DISEASE
     Dosage: 20 MG DAILY
     Dates: end: 20130501
  5. LYRICA [Concomitant]
     Indication: FIBROMYALGIA
     Dosage: 1 IN AM, 2 IN PM
  6. OMEPRAZOLE [Concomitant]
     Indication: GASTROOESOPHAGEAL REFLUX DISEASE
  7. VITAMIN E [Concomitant]
     Indication: MUSCLE SPASMS
  8. PROBIOTIC [Concomitant]
     Indication: NUTRITIONAL SUPPLEMENTATION
     Dosage: DAILY
  9. BUTALBITAL [Concomitant]
     Indication: TENSION HEADACHE

REACTIONS (13)
  - Sneezing [Recovered/Resolved]
  - Injection site pruritus [Recovered/Resolved]
  - Throat irritation [Recovered/Resolved]
  - Sinus headache [Recovered/Resolved]
  - Cough [Recovered/Resolved]
  - Injection site pain [Unknown]
  - Injection site swelling [Unknown]
  - Injection site mass [Unknown]
  - Injection site erythema [Unknown]
  - Dyspepsia [Unknown]
  - Muscle spasms [Unknown]
  - Therapeutic response unexpected [Unknown]
  - Therapeutic response unexpected [Unknown]
